FAERS Safety Report 18404577 (Version 1)
Quarter: 2020Q4

REPORT INFORMATION
  Report Type: Report from Study
  Country: ES (occurrence: ES)
  Receive Date: 20201020
  Receipt Date: 20201020
  Transmission Date: 20210114
  Serious: Yes (Death, Other)
  Sender: FDA-Public Use
  Company Number: ES-PFIZER INC-2020400203

PATIENT

DRUGS (3)
  1. GLUCOSE [Concomitant]
     Active Substance: DEXTROSE
     Dosage: UNK
  2. GEMCITABINE HYDROCHLORIDE. [Suspect]
     Active Substance: GEMCITABINE HYDROCHLORIDE
     Indication: NON-SMALL CELL LUNG CANCER
     Dosage: 1250 MG/M2, CYCLIC (OVER 30 MINUTES ON DAYS 1 AND 8 OF EACH 21-DAY CYCLE)
     Route: 042
  3. CISPLATIN. [Suspect]
     Active Substance: CISPLATIN
     Indication: NON-SMALL CELL LUNG CANCER
     Dosage: 100 MG/M2, CYCLIC (60-MINUTE INFUSION OF 5% GLUCOSE IN NORMAL SALINE ON DAY 1 BEFORE GEMCITABINE)
     Route: 042

REACTIONS (7)
  - Atrial fibrillation [Unknown]
  - Shock [Fatal]
  - Bronchospasm [Unknown]
  - Thrombocytopenia [Unknown]
  - Sepsis [Unknown]
  - Pneumonia [Unknown]
  - Febrile neutropenia [Unknown]
